FAERS Safety Report 26076469 (Version 1)
Quarter: 2025Q4

REPORT INFORMATION
  Report Type: Spontaneous
  Country: US (occurrence: US)
  Receive Date: 20251121
  Receipt Date: 20251121
  Transmission Date: 20260118
  Serious: Yes (Other)
  Sender: PFIZER
  Company Number: US-PFIZER INC-PV202500135204

PATIENT
  Age: 72 Year
  Sex: Male

DRUGS (8)
  1. LORBRENA [Suspect]
     Active Substance: LORLATINIB
     Dosage: UNK
  2. TECENTRIQ [Concomitant]
     Active Substance: ATEZOLIZUMAB
     Dosage: UNK
  3. ZETIA [Concomitant]
     Active Substance: EZETIMIBE
     Dosage: UNK
  4. ROBINUL [Concomitant]
     Active Substance: GLYCOPYRROLATE
     Dosage: UNK
  5. STROMECTOL [Concomitant]
     Active Substance: IVERMECTIN
     Dosage: UNK
  6. LINZESS [Concomitant]
     Active Substance: LINACLOTIDE
     Dosage: UNK
  7. ZOFRAN [Concomitant]
     Active Substance: ONDANSETRON HYDROCHLORIDE
     Dosage: UNK
  8. OMEPRAZOLE [Concomitant]
     Active Substance: OMEPRAZOLE
     Dosage: UNK

REACTIONS (4)
  - Type 2 diabetes mellitus [Not Recovered/Not Resolved]
  - Nervous system disorder [Unknown]
  - Confusional state [Unknown]
  - Drug intolerance [Unknown]
